FAERS Safety Report 6688565-0 (Version None)
Quarter: 2010Q2

REPORT INFORMATION
  Report Type: 
  Country: None (occurrence: None)
  Receive Date: 20100420
  Receipt Date: 20100301
  Transmission Date: 20101027
  Serious: Yes (Hospitalization)
  Sender: FDA-Public Use
  Company Number: AU-MERCK-1004USA02484

PATIENT
  Age: 76 Year
  Sex: Male

DRUGS (1)
  1. ZOCOR [Suspect]
     Route: 048
     Dates: end: 20091105

REACTIONS (2)
  - MUSCULAR WEAKNESS [None]
  - PAIN IN EXTREMITY [None]
